FAERS Safety Report 19001492 (Version 1)
Quarter: 2021Q1

REPORT INFORMATION
  Report Type: Spontaneous
  Country: US (occurrence: US)
  Receive Date: 20210312
  Receipt Date: 20210312
  Transmission Date: 20210420
  Serious: No
  Sender: FDA-Public Use
  Company Number: US-FARMAPROD-202101-0008

PATIENT
  Sex: Male

DRUGS (21)
  1. GENTEAL NIGHT?TIME PM [Concomitant]
     Active Substance: MINERAL OIL\PETROLATUM
     Dosage: 3%?94%
  2. LUMIGAN [Concomitant]
     Active Substance: BIMATOPROST
  3. LISINOPRIL. [Concomitant]
     Active Substance: LISINOPRIL
  4. ASPIRINE [Concomitant]
     Active Substance: ASPIRIN
  5. VITAMIN B12 [Concomitant]
     Active Substance: CYANOCOBALAMIN
  6. VITAMIN A [Concomitant]
     Active Substance: VITAMIN A
  7. VALACYCLOVIR [Concomitant]
     Active Substance: VALACYCLOVIR HYDROCHLORIDE
  8. ATORVASTATIN CALCIUM. [Concomitant]
     Active Substance: ATORVASTATIN CALCIUM
  9. VITAMIN B COMPLEX [Concomitant]
     Active Substance: CYANOCOBALAMIN\DEXPANTHENOL\NIACINAMIDE\PYRIDOXINE HYDROCHLORIDE\RIBOFLAVIN 5^-PHOSPHATE SODIUM\THIAMINE HYDROCHLORIDE\VITAMIN B COMPLEX
  10. ALPHA LIPOIC ACID [Concomitant]
     Active Substance: .ALPHA.-LIPOIC ACID
  11. LASIX [Concomitant]
     Active Substance: FUROSEMIDE
  12. DORZOLAMIDE?TIMOLOL [Concomitant]
     Active Substance: DORZOLAMIDE\TIMOLOL
  13. REFRESH PLUS [Concomitant]
     Active Substance: CARBOXYMETHYLCELLULOSE SODIUM
     Dosage: DROPERRETTE
  14. PREDNISONE. [Concomitant]
     Active Substance: PREDNISONE
  15. SIROLIMUS. [Concomitant]
     Active Substance: SIROLIMUS
  16. RHOPRESSA [Concomitant]
     Active Substance: NETARSUDIL MESYLATE
  17. VITAMIN D3 [Concomitant]
     Active Substance: CHOLECALCIFEROL
  18. FISH OIL/VITAMINE D3 [Concomitant]
  19. OXERVATE [Suspect]
     Active Substance: CENEGERMIN-BKBJ
     Indication: NEUROTROPHIC KERATOPATHY
     Route: 047
  20. MYCOPHENOLIC ACID. [Concomitant]
     Active Substance: MYCOPHENOLIC ACID
     Dosage: EXTENDED RELEASE TABLET
  21. BRIMONIDINE TARTRATE. [Concomitant]
     Active Substance: BRIMONIDINE TARTRATE

REACTIONS (5)
  - Swelling of eyelid [Unknown]
  - Accidental overdose [Unknown]
  - Eye pain [Unknown]
  - Lacrimation increased [Unknown]
  - Visual impairment [Unknown]
